FAERS Safety Report 25512123 (Version 1)
Quarter: 2025Q3

REPORT INFORMATION
  Report Type: Spontaneous
  Country: PH (occurrence: PH)
  Receive Date: 20250703
  Receipt Date: 20250703
  Transmission Date: 20251021
  Serious: Yes (Death)
  Sender: NOVARTIS
  Company Number: PH-002147023-NVSC2025PH106283

PATIENT
  Sex: Male

DRUGS (2)
  1. INCLISIRAN [Suspect]
     Active Substance: INCLISIRAN
     Indication: Product used for unknown indication
     Route: 065
  2. INCLISIRAN [Suspect]
     Active Substance: INCLISIRAN
     Route: 065

REACTIONS (1)
  - Myocardial infarction [Fatal]
